FAERS Safety Report 8622881-8 (Version None)
Quarter: 2012Q3

REPORT INFORMATION
  Report Type: 
  Country: None (occurrence: None)
  Receive Date: 20120827
  Receipt Date: 20120819
  Transmission Date: 20120928
  Serious: Yes (Hospitalization)
  Sender: FDA-Public Use
  Company Number: PHHY2012MX072030

PATIENT
  Sex: Male

DRUGS (3)
  1. EXFORGE HCT [Suspect]
     Dosage: 1 DF, QD (1 TABLET OF UNSPECIFIED DOSE ONCE A DAY)
     Dates: start: 20111101
  2. METFORMIN HCL [Suspect]
     Indication: DIABETES MELLITUS
     Dosage: 1 DF, DAILY (1000/50 MG)
     Dates: start: 20090801
  3. BLODOVIT [Concomitant]

REACTIONS (2)
  - GENERAL PHYSICAL CONDITION ABNORMAL [None]
  - CORONARY ARTERY OCCLUSION [None]
